FAERS Safety Report 4320696-2 (Version None)
Quarter: 2004Q1

REPORT INFORMATION
  Report Type: 
  Country: None (occurrence: None)
  Receive Date: 20040318
  Receipt Date: 20040301
  Transmission Date: 20041129
  Serious: Yes (Life-Threatening, Hospitalization)
  Sender: FDA-Public Use
  Company Number: F04200300195

PATIENT
  Age: 82 Year
  Sex: Male

DRUGS (9)
  1. ARIXTRA [Suspect]
     Indication: THROMBOSIS PROPHYLAXIS
     Dosage: 2.5 MG OD SUBCUTANEOUS
     Route: 058
     Dates: start: 20030212, end: 20030218
  2. VIOXX [Concomitant]
  3. CORVATON (MOLSIDOMINE) [Concomitant]
  4. ACC 200 (ACETYLCYSTEINE) [Concomitant]
  5. MONO MACK DEPOT (ISOSORBIDE MONONITRATE) [Concomitant]
  6. TOREM (TORASEMIDE) [Concomitant]
  7. PROSTAGUTT (SABAL SERRULATA + URTICA DIOICA) [Concomitant]
  8. LASIX 20 (FUROSEMIDE) [Concomitant]
  9. ZYLORIC 300 (ALLOPURINOL) [Concomitant]

REACTIONS (3)
  - ANAEMIA [None]
  - GASTRIC ULCER [None]
  - UPPER GASTROINTESTINAL HAEMORRHAGE [None]
